FAERS Safety Report 24921566 (Version 1)
Quarter: 2025Q1

REPORT INFORMATION
  Report Type: Spontaneous
  Country: SE (occurrence: SE)
  Receive Date: 20250204
  Receipt Date: 20250204
  Transmission Date: 20250409
  Serious: Yes (Life-Threatening, Hospitalization, Other)
  Sender: BRISTOL-MYERS SQUIBB COMPANY
  Company Number: None

PATIENT
  Age: 78 Year
  Sex: Male

DRUGS (22)
  1. OPDIVO [Suspect]
     Active Substance: NIVOLUMAB
     Indication: Gastric cancer
     Dates: start: 20241022, end: 20241022
  2. OPDIVO [Suspect]
     Active Substance: NIVOLUMAB
     Dates: start: 20241105, end: 20241105
  3. OPDIVO [Suspect]
     Active Substance: NIVOLUMAB
     Dates: start: 20241119, end: 20241119
  4. OPDIVO [Suspect]
     Active Substance: NIVOLUMAB
     Dates: start: 20241203, end: 20241203
  5. FLUOROURACIL [Concomitant]
     Active Substance: FLUOROURACIL
     Indication: Gastric cancer
     Dates: start: 20241022
  6. ALGINIC ACID\ALUMINUM HYDROXIDE [Concomitant]
     Active Substance: ALGINIC ACID\ALUMINUM HYDROXIDE
     Indication: Product used for unknown indication
     Dates: start: 20241022
  7. ATENOLOL [Concomitant]
     Active Substance: ATENOLOL
     Indication: Product used for unknown indication
     Dates: start: 20170526
  8. ACETAMINOPHEN [Concomitant]
     Active Substance: ACETAMINOPHEN
     Indication: Product used for unknown indication
     Dates: start: 20220912
  9. SITAGLIPTIN STADA [Concomitant]
     Indication: Product used for unknown indication
     Dates: start: 20240326
  10. BETAPRED [Concomitant]
     Active Substance: BETAMETHASONE SODIUM PHOSPHATE
     Indication: Product used for unknown indication
     Dates: start: 20241003
  11. BENDROFLUMETHIAZIDE [Concomitant]
     Active Substance: BENDROFLUMETHIAZIDE
     Indication: Product used for unknown indication
     Dates: start: 20231107
  12. OLANZAPINE [Concomitant]
     Active Substance: OLANZAPINE
     Indication: Product used for unknown indication
     Dates: start: 20241003
  13. ESOMEPRAZOLE [Concomitant]
     Active Substance: ESOMEPRAZOLE
     Indication: Product used for unknown indication
     Dates: start: 20240708
  14. AMLODIPINE BESYLATE [Concomitant]
     Active Substance: AMLODIPINE BESYLATE
     Indication: Product used for unknown indication
     Dates: start: 20200918
  15. LEUCOVORIN CALCIUM [Concomitant]
     Active Substance: LEUCOVORIN CALCIUM
     Indication: Product used for unknown indication
     Dates: start: 20241022
  16. MOVICOL [Concomitant]
     Active Substance: POLYETHYLENE GLYCOL 3350\POTASSIUM CHLORIDE\SODIUM BICARBONATE\SODIUM CHLORIDE
     Indication: Product used for unknown indication
     Dates: start: 20241030
  17. AKYNZEO [FOSNETUPITANT CHLORIDE HYDROCHLORIDE;PALONOSETRON HYDROCHLORI [Concomitant]
     Indication: Product used for unknown indication
     Dates: start: 20241003
  18. ALFUZOSIN ORION [Concomitant]
     Indication: Product used for unknown indication
     Dates: start: 20190523
  19. CANDESARTAN [Concomitant]
     Active Substance: CANDESARTAN
     Indication: Product used for unknown indication
     Dates: start: 20240409
  20. OXYCODONE HYDROCHLORIDE [Concomitant]
     Active Substance: OXYCODONE HYDROCHLORIDE
     Indication: Product used for unknown indication
     Dates: start: 20240805
  21. OXALIPLATIN [Concomitant]
     Active Substance: OXALIPLATIN
     Indication: Product used for unknown indication
     Dates: start: 20241022
  22. CYANOCOBALAMIN [Concomitant]
     Active Substance: CYANOCOBALAMIN
     Indication: Product used for unknown indication
     Dates: start: 20240319

REACTIONS (3)
  - Myocarditis [Not Recovered/Not Resolved]
  - VIth nerve paralysis [Unknown]
  - Myasthenia gravis [Not Recovered/Not Resolved]

NARRATIVE: CASE EVENT DATE: 20241201
